FAERS Safety Report 25841633 (Version 1)
Quarter: 2025Q3

REPORT INFORMATION
  Report Type: Spontaneous
  Country: US (occurrence: US)
  Receive Date: 20250924
  Receipt Date: 20250924
  Transmission Date: 20251021
  Serious: Yes (Other)
  Sender: AMGEN
  Company Number: US-AMGEN-USASP2025185540

PATIENT
  Age: 61 Year
  Sex: Male

DRUGS (6)
  1. PREDNISONE [Suspect]
     Active Substance: PREDNISONE
     Indication: Pneumonia
     Route: 065
  2. PREDNISONE [Suspect]
     Active Substance: PREDNISONE
     Indication: Bronchopulmonary aspergillosis allergic
  3. ITRACONAZOLE [Concomitant]
     Active Substance: ITRACONAZOLE
     Indication: Pneumonia
     Dates: start: 2023
  4. FLUTICASONE FUROATE [Concomitant]
     Active Substance: FLUTICASONE FUROATE
     Indication: Pneumonia
     Dates: start: 2023
  5. UMECLIDINIUM [Concomitant]
     Active Substance: UMECLIDINIUM
     Indication: Pneumonia
     Dates: start: 2023
  6. VILANTEROL [Concomitant]
     Active Substance: VILANTEROL
     Indication: Pneumonia
     Dates: start: 2023

REACTIONS (5)
  - Pneumonia [Recovered/Resolved]
  - Treatment failure [Unknown]
  - Mania [Unknown]
  - COVID-19 [Recovered/Resolved]
  - Asthma [Recovered/Resolved]

NARRATIVE: CASE EVENT DATE: 20230101
